FAERS Safety Report 12048439 (Version 1)
Quarter: 2016Q1

REPORT INFORMATION
  Report Type: Report from Study
  Country: US (occurrence: US)
  Receive Date: 20160209
  Receipt Date: 20160209
  Transmission Date: 20160526
  Serious: No
  Sender: FDA-Public Use
  Company Number: PHEH2016US002905

PATIENT
  Sex: Male

DRUGS (2)
  1. TASIGNA [Suspect]
     Active Substance: NILOTINIB
     Indication: PARKINSON^S DISEASE
  2. TASIGNA [Suspect]
     Active Substance: NILOTINIB
     Indication: DEMENTIA
     Dosage: 150 MG, BID
     Route: 048
     Dates: start: 20151022

REACTIONS (1)
  - Product use issue [Unknown]
